FAERS Safety Report 6041967-8 (Version None)
Quarter: 2009Q1

REPORT INFORMATION
  Report Type: 
  Country: None (occurrence: None)
  Receive Date: 20090116
  Receipt Date: 20090107
  Transmission Date: 20090719
  Serious: Yes (Death, Hospitalization, Other)
  Sender: FDA-Public Use
  Company Number: US-PFIZER INC-2005165428

PATIENT
  Sex: Female
  Weight: 58.97 kg

DRUGS (1)
  1. DILANTIN [Suspect]
     Indication: CONVULSION
     Route: 065
     Dates: start: 20000901, end: 20050101

REACTIONS (12)
  - ABASIA [None]
  - ANTICONVULSANT DRUG LEVEL INCREASED [None]
  - APHASIA [None]
  - ATAXIA [None]
  - BRAIN NEOPLASM [None]
  - COMA [None]
  - DEPRESSED LEVEL OF CONSCIOUSNESS [None]
  - DYSPHAGIA [None]
  - FEELING ABNORMAL [None]
  - NYSTAGMUS [None]
  - OVERDOSE [None]
  - TREMOR [None]
